FAERS Safety Report 5662243-9 (Version None)
Quarter: 2008Q1

REPORT INFORMATION
  Report Type: 
  Country: None (occurrence: None)
  Receive Date: 20080312
  Receipt Date: 20080229
  Transmission Date: 20080703
  Serious: Yes (Other)
  Sender: FDA-Public Use
  Company Number: US-PFIZER INC-2007107004

PATIENT
  Sex: Female
  Weight: 49.9 kg

DRUGS (4)
  1. CHANTIX [Suspect]
     Indication: SMOKING CESSATION THERAPY
     Route: 048
     Dates: start: 20071101, end: 20071115
  2. TRAZODONE HCL [Concomitant]
  3. ATIVAN [Concomitant]
  4. ZANTAC [Concomitant]

REACTIONS (9)
  - ANGER [None]
  - ARTHRALGIA [None]
  - DEPRESSION [None]
  - FIBROMYALGIA [None]
  - HOMICIDAL IDEATION [None]
  - MALAISE [None]
  - NAUSEA [None]
  - PAIN IN EXTREMITY [None]
  - SUICIDAL IDEATION [None]
